FAERS Safety Report 21615851 (Version 1)
Quarter: 2022Q4

REPORT INFORMATION
  Report Type: Spontaneous
  Country: CN (occurrence: CN)
  Receive Date: 20221118
  Receipt Date: 20221118
  Transmission Date: 20230112
  Serious: Yes (Other)
  Sender: FDA-Public Use
  Company Number: None

PATIENT
  Age: 3 Year
  Sex: Male
  Weight: 15 kg

DRUGS (4)
  1. CYCLOPHOSPHAMIDE [Suspect]
     Active Substance: CYCLOPHOSPHAMIDE
     Indication: Retroperitoneal cancer
     Dosage: 0.32 G, ONCE DAILY, DILUTED WITH 100 ML OF 4:1 GLUCOSE AND SODIUM CHLORIDE
     Route: 041
     Dates: start: 20221014, end: 20221017
  2. DEXTROSE\SODIUM CHLORIDE [Suspect]
     Active Substance: DEXTROSE\SODIUM CHLORIDE
     Indication: Medication dilution
     Dosage: 100ML, 4:1, ONCE DAILY, USED TO DILUTE 0.32 G CYCLOPHOSPHAMIDE
     Route: 041
     Dates: start: 20221014, end: 20221017
  3. DEXTROSE\SODIUM CHLORIDE [Suspect]
     Active Substance: DEXTROSE\SODIUM CHLORIDE
     Dosage: 100ML, 4:1, ONCE DAILY, USED TO DILUTE 77 MG IRINOTECAN
     Route: 041
     Dates: start: 20221014, end: 20221016
  4. IRINOTECAN HYDROCHLORIDE [Suspect]
     Active Substance: IRINOTECAN HYDROCHLORIDE
     Indication: Retroperitoneal cancer
     Dosage: 77 MG, ONCE DAILY, DILUTED WITH 100 ML OF 4:1 GLUCOSE AND SODIUM CHLORIDE
     Route: 041
     Dates: start: 20221014, end: 20221016

REACTIONS (1)
  - Myelosuppression [Recovering/Resolving]

NARRATIVE: CASE EVENT DATE: 20221018
